FAERS Safety Report 8785870 (Version 1)
Quarter: 2012Q4

REPORT INFORMATION
  Report Type: 
  Country: US (occurrence: US)
  Receive Date: 20120914
  Receipt Date: 20120914
  Transmission Date: 20130627
  Serious: Yes (Hospitalization)
  Sender: FDA-Public Use
  Company Number: US-SANOFI-AVENTIS-2012SA064652

PATIENT
  Age: 55 Year
  Sex: Male

DRUGS (13)
  1. MULTAQ [Suspect]
     Indication: ATRIAL FIBRILLATION
     Route: 048
     Dates: start: 201207
  2. MULTAQ [Suspect]
     Indication: ATRIAL FIBRILLATION
     Route: 048
     Dates: start: 2012
  3. ASPIRIN [Concomitant]
  4. CLOPIDOGREL [Concomitant]
  5. DILTIAZEM [Concomitant]
     Indication: BLOOD PRESSURE HIGH
  6. ALL OTHER THERAPEUTIC PRODUCTS [Concomitant]
  7. CRESTOR /UNK/ [Concomitant]
  8. DIAZEPAM [Concomitant]
     Indication: TINNITUS
  9. DIAZEPAM [Concomitant]
     Indication: FOOT CRAMPS
  10. GLYBURIDE [Concomitant]
  11. METFORMIN [Concomitant]
  12. FEBUXOSTAT [Concomitant]
     Indication: GOUT
  13. METHYLPREDNISOLONE [Concomitant]
     Indication: JOINT DISORDER

REACTIONS (11)
  - Dyspepsia [Not Recovered/Not Resolved]
  - Abdominal distension [Not Recovered/Not Resolved]
  - Malaise [Not Recovered/Not Resolved]
  - Vomiting [Not Recovered/Not Resolved]
  - Asthenia [Not Recovered/Not Resolved]
  - Abdominal pain upper [Not Recovered/Not Resolved]
  - Underdose [Not Recovered/Not Resolved]
  - Heart rate decreased [Not Recovered/Not Resolved]
  - Oedema peripheral [Not Recovered/Not Resolved]
  - Arrhythmia [Recovered/Resolved]
  - Blood creatinine increased [Unknown]
